FAERS Safety Report 7991958-2 (Version None)
Quarter: 2011Q4

REPORT INFORMATION
  Report Type: 
  Country: None (occurrence: None)
  Receive Date: 20111219
  Receipt Date: 20110926
  Transmission Date: 20120403
  Serious: No
  Sender: FDA-Public Use
  Company Number: US-ASTRAZENECA-2011SE58113

PATIENT
  Age: 64 Year
  Sex: Male
  Weight: 97.5 kg

DRUGS (4)
  1. METOPROLOL [Concomitant]
  2. ASPIRIN [Concomitant]
  3. HYZAAR [Concomitant]
  4. CRESTOR [Suspect]
     Indication: BLOOD CHOLESTEROL INCREASED
     Route: 048
     Dates: start: 20110801

REACTIONS (9)
  - HUNGER [None]
  - ARTHRALGIA [None]
  - CONSTIPATION [None]
  - PAIN IN EXTREMITY [None]
  - WRONG TECHNIQUE IN DRUG USAGE PROCESS [None]
  - VOMITING [None]
  - MYALGIA [None]
  - NAUSEA [None]
  - DEPRESSION [None]
